FAERS Safety Report 20572172 (Version 1)
Quarter: 2022Q1

REPORT INFORMATION
  Report Type: Spontaneous
  Country: CA (occurrence: CA)
  Receive Date: 20220309
  Receipt Date: 20220309
  Transmission Date: 20220423
  Serious: Yes (Other)
  Sender: FDA-Public Use
  Company Number: CA-BAUSCH-BL-2022-005912

PATIENT
  Age: 58 Year
  Sex: Female
  Weight: 52 kg

DRUGS (16)
  1. METFORMIN [Suspect]
     Active Substance: METFORMIN HYDROCHLORIDE
     Indication: Product used for unknown indication
     Route: 065
  2. ACETAMINOPHEN [Suspect]
     Active Substance: ACETAMINOPHEN
     Indication: Product used for unknown indication
     Route: 065
  3. BACLOFEN [Suspect]
     Active Substance: BACLOFEN
     Indication: Product used for unknown indication
     Route: 065
  4. BACLOFEN [Suspect]
     Active Substance: BACLOFEN
     Route: 065
  5. CYMBALTA [Suspect]
     Active Substance: DULOXETINE HYDROCHLORIDE
     Indication: Product used for unknown indication
     Route: 065
  6. GLICLAZIDE [Suspect]
     Active Substance: GLICLAZIDE
     Indication: Product used for unknown indication
     Route: 065
  7. JANUVIA [Suspect]
     Active Substance: SITAGLIPTIN PHOSPHATE
     Indication: Product used for unknown indication
     Route: 065
  8. LEFLUNOMIDE [Suspect]
     Active Substance: LEFLUNOMIDE
     Indication: Product used for unknown indication
     Route: 065
  9. LEUCOVORIN CALCIUM [Suspect]
     Active Substance: LEUCOVORIN CALCIUM
     Indication: Product used for unknown indication
     Route: 065
  10. MICARDIS [Suspect]
     Active Substance: TELMISARTAN
     Indication: Product used for unknown indication
     Route: 065
  11. ROSUVASTATIN CALCIUM [Suspect]
     Active Substance: ROSUVASTATIN CALCIUM
     Indication: Product used for unknown indication
     Route: 048
  12. ROSUVASTATIN CALCIUM [Suspect]
     Active Substance: ROSUVASTATIN CALCIUM
     Route: 065
  13. PANTOPRAZOLE MAGNESIUM [Suspect]
     Active Substance: PANTOPRAZOLE MAGNESIUM
     Indication: Product used for unknown indication
     Route: 065
  14. TYLENOL [Suspect]
     Active Substance: ACETAMINOPHEN
     Indication: Product used for unknown indication
     Route: 065
  15. PROLIA [Concomitant]
     Active Substance: DENOSUMAB
     Indication: Product used for unknown indication
     Dosage: PRE-FILLED SYRINGE-PRESERVATIVE-FREE
     Route: 058
  16. PROLIA [Concomitant]
     Active Substance: DENOSUMAB
     Dosage: PRE-FILLED SYRINGE-PRESERVATIVE-FREE
     Route: 058

REACTIONS (22)
  - Arthralgia [Unknown]
  - Bursitis [Unknown]
  - Dizziness [Unknown]
  - Haemoglobin increased [Unknown]
  - Hand deformity [Unknown]
  - Osteoarthritis [Unknown]
  - Hypokinesia [Unknown]
  - Joint noise [Unknown]
  - Joint swelling [Unknown]
  - Muscle atrophy [Unknown]
  - Osteoporosis [Unknown]
  - Pain [Unknown]
  - Pain in extremity [Unknown]
  - Rheumatoid arthritis [Unknown]
  - Rotator cuff syndrome [Unknown]
  - Scoliosis [Unknown]
  - Tendonitis [Unknown]
  - Blood pressure systolic increased [Unknown]
  - Myalgia [Unknown]
  - Musculoskeletal pain [Unknown]
  - Nausea [Unknown]
  - Drug ineffective [Unknown]
